FAERS Safety Report 18974734 (Version 1)
Quarter: 2021Q1

REPORT INFORMATION
  Report Type: Spontaneous
  Country: EG (occurrence: EG)
  Receive Date: 20210305
  Receipt Date: 20210305
  Transmission Date: 20210420
  Serious: Yes (Death, Other)
  Sender: FDA-Public Use
  Company Number: EG-ROCHE-2782084

PATIENT
  Age: 50 Year
  Sex: Male
  Weight: 95 kg

DRUGS (7)
  1. REMDESIVIR. [Suspect]
     Active Substance: REMDESIVIR
     Indication: PRODUCT USED FOR UNKNOWN INDICATION
     Route: 065
     Dates: start: 20201226, end: 20210105
  2. REMDESIVIR. [Suspect]
     Active Substance: REMDESIVIR
     Route: 065
     Dates: start: 20201226, end: 20210105
  3. ACTRAPID [Suspect]
     Active Substance: INSULIN HUMAN
     Indication: DIABETES MELLITUS
     Dosage: 100 IU/ML, ACCORDING TO THE SLIDING SCALE
     Route: 058
     Dates: start: 20201222, end: 20210107
  4. LEVOFLOXACIN. [Suspect]
     Active Substance: LEVOFLOXACIN
     Indication: COVID-19
     Route: 048
     Dates: start: 20210101, end: 20210104
  5. ACTEMRA [Suspect]
     Active Substance: TOCILIZUMAB
     Indication: COVID-19
  6. ACTEMRA [Suspect]
     Active Substance: TOCILIZUMAB
     Indication: CYTOKINE STORM
     Dosage: STRENGH: 20MG/ML VIAL
     Route: 065
     Dates: start: 20210103, end: 20210104
  7. METHYLPREDNISOLONE. [Suspect]
     Active Substance: METHYLPREDNISOLONE
     Indication: PRODUCT USED FOR UNKNOWN INDICATION
     Route: 065
     Dates: start: 20201226, end: 20210109

REACTIONS (7)
  - Diabetes mellitus inadequate control [Unknown]
  - Intentional product use issue [Unknown]
  - Diabetic foot infection [Unknown]
  - Immunodeficiency [Unknown]
  - Off label use [Unknown]
  - Death [Fatal]
  - Sepsis [Unknown]

NARRATIVE: CASE EVENT DATE: 202101
